FAERS Safety Report 17812339 (Version 4)
Quarter: 2022Q3

REPORT INFORMATION
  Report Type: Spontaneous
  Country: US (occurrence: US)
  Receive Date: 20200521
  Receipt Date: 20220824
  Transmission Date: 20221027
  Serious: No
  Sender: FDA-Public Use
  Company Number: US-BIOGEN-2020BI00876321

PATIENT
  Sex: Female

DRUGS (1)
  1. TECFIDERA [Suspect]
     Active Substance: DIMETHYL FUMARATE
     Indication: Multiple sclerosis
     Route: 050
     Dates: start: 20170602

REACTIONS (10)
  - Increased tendency to bruise [Not Recovered/Not Resolved]
  - Gastric disorder [Unknown]
  - Multiple sclerosis [Unknown]
  - Contusion [Unknown]
  - Head injury [Unknown]
  - Transient ischaemic attack [Unknown]
  - Road traffic accident [Recovered/Resolved]
  - Urinary incontinence [Recovered/Resolved]
  - Diarrhoea [Recovered/Resolved]
  - Hot flush [Unknown]

NARRATIVE: CASE EVENT DATE: 20180101
